FAERS Safety Report 20559251 (Version 1)
Quarter: 2022Q1

REPORT INFORMATION
  Report Type: Spontaneous
  Country: US (occurrence: US)
  Receive Date: 20220307
  Receipt Date: 20220307
  Transmission Date: 20220423
  Serious: No
  Sender: FDA-Public Use
  Company Number: US-TEVA-2022-US-2008345

PATIENT
  Sex: Female

DRUGS (4)
  1. CLONIDINE [Suspect]
     Active Substance: CLONIDINE
     Dosage: .1 MILLIGRAM DAILY; 0.1 MG/24HR
     Route: 062
  2. CLONIDINE [Suspect]
     Active Substance: CLONIDINE
     Dosage: .2 MILLIGRAM DAILY; 0.2 MG/24HR
     Route: 062
  3. CLONIDINE [Suspect]
     Active Substance: CLONIDINE
     Dosage: .3 MILLIGRAM DAILY; 0.3MG/24HR
     Route: 062
  4. CLONIDINE [Suspect]
     Active Substance: CLONIDINE
     Dosage: .6 MILLIGRAM DAILY; 0.3MG (2)/24HR
     Route: 062

REACTIONS (6)
  - Drug ineffective [Unknown]
  - Blood pressure increased [Unknown]
  - Constipation [Unknown]
  - Abdominal pain [Unknown]
  - Fatigue [Unknown]
  - Headache [Unknown]
